FAERS Safety Report 8462865-6 (Version None)
Quarter: 2012Q2

REPORT INFORMATION
  Report Type: 
  Country: None (occurrence: None)
  Receive Date: 20120625
  Receipt Date: 20120615
  Transmission Date: 20120825
  Serious: No
  Sender: FDA-Public Use
  Company Number: FR-ROCHE-1073287

PATIENT
  Sex: Female
  Weight: 35 kg

DRUGS (2)
  1. KEPPRA [Concomitant]
     Route: 048
  2. NUTROPIN AQ [Suspect]
     Indication: GROWTH HORMONE DEFICIENCY
     Dosage: STENGTH 10 MG/2ML
     Route: 058
     Dates: start: 20111130

REACTIONS (1)
  - ALOPECIA [None]
